FAERS Safety Report 8369649-8 (Version None)
Quarter: 2012Q1

REPORT INFORMATION
  Report Type: 
  Country: None (occurrence: None)
  Receive Date: 20120323
  Receipt Date: 20110316
  Transmission Date: 20120608
  Serious: Yes (Hospitalization)
  Sender: FDA-Public Use
  Company Number: 163-21880-11012534

PATIENT
  Age: 83 Year
  Sex: Female

DRUGS (3)
  1. DEXAMETHASONE [Concomitant]
  2. REVLIMID [Suspect]
     Indication: MULTIPLE MYELOMA
     Dosage: 25 MG, DAILY X 21 DAYS, PO
     Route: 048
     Dates: start: 20110101, end: 20110305
  3. ASPIRIN [Concomitant]

REACTIONS (8)
  - NAUSEA [None]
  - RASH [None]
  - COUGH [None]
  - DIARRHOEA [None]
  - PNEUMONIA [None]
  - RESPIRATORY TRACT INFECTION [None]
  - VOMITING [None]
  - INFLUENZA [None]
